FAERS Safety Report 18260355 (Version 4)
Quarter: 2020Q4

REPORT INFORMATION
  Report Type: Other
  Country: CA (occurrence: CA)
  Receive Date: 20200914
  Receipt Date: 20201116
  Transmission Date: 20210113
  Serious: Yes (Hospitalization, Other)
  Sender: FDA-Public Use
  Company Number: CA-ROCHE-2573902

PATIENT
  Age: 43 Year
  Sex: Female

DRUGS (4)
  1. OCREVUS [Suspect]
     Active Substance: OCRELIZUMAB
     Indication: RELAPSING-REMITTING MULTIPLE SCLEROSIS
     Dosage: DAY 0, 14 THEN 600 MG Q6M
     Route: 042
     Dates: start: 20190326
  2. NEXIUM [Concomitant]
     Active Substance: ESOMEPRAZOLE MAGNESIUM
  3. FAMOTIDINE. [Concomitant]
     Active Substance: FAMOTIDINE
  4. OCREVUS [Suspect]
     Active Substance: OCRELIZUMAB
     Dosage: DAY 0, 14 THEN 600 MG Q6M
     Route: 042

REACTIONS (7)
  - Abdominal pain upper [Recovering/Resolving]
  - Pancreatitis [Not Recovered/Not Resolved]
  - Urinary tract infection [Recovering/Resolving]
  - Dyspepsia [Recovering/Resolving]
  - Gastric ulcer [Not Recovered/Not Resolved]
  - Abdominal pain [Recovered/Resolved]
  - Hypersensitivity [Unknown]

NARRATIVE: CASE EVENT DATE: 20200306
